FAERS Safety Report 19427471 (Version 1)
Quarter: 2021Q2

REPORT INFORMATION
  Report Type: Spontaneous
  Country: GB (occurrence: GB)
  Receive Date: 20210617
  Receipt Date: 20210617
  Transmission Date: 20210717
  Serious: Yes (Other)
  Sender: FDA-Public Use
  Company Number: GB-ADVANZ PHARMA-202106004192

PATIENT

DRUGS (6)
  1. OMEPRAZOLE. [Concomitant]
     Active Substance: OMEPRAZOLE
     Dosage: COATED
  2. AZATHIOPRINE. [Suspect]
     Active Substance: AZATHIOPRINE
     Indication: RASH
     Route: 048
     Dates: start: 20210517, end: 20210528
  3. PREDNISONE. [Suspect]
     Active Substance: PREDNISONE
     Dosage: 10 MG
  4. PREDNISONE. [Suspect]
     Active Substance: PREDNISONE
     Dosage: 5 MG
  5. ASPIRIN. [Concomitant]
     Active Substance: ASPIRIN
     Dosage: COATED
  6. PREDNISOLONE. [Suspect]
     Active Substance: PREDNISOLONE
     Route: 048
     Dates: start: 20210517

REACTIONS (29)
  - Condition aggravated [Not Recovered/Not Resolved]
  - Pain [Unknown]
  - Muscular weakness [Unknown]
  - Pruritus [Not Recovered/Not Resolved]
  - Paraesthesia [Not Recovered/Not Resolved]
  - Tremor [Not Recovered/Not Resolved]
  - Dizziness postural [Not Recovered/Not Resolved]
  - Eye pain [Unknown]
  - Nervousness [Unknown]
  - Vomiting [Not Recovered/Not Resolved]
  - Euphoric mood [Unknown]
  - Dizziness [Unknown]
  - Furuncle [Not Recovered/Not Resolved]
  - Blister [Not Recovered/Not Resolved]
  - Panic disorder [Unknown]
  - Insomnia [Recovered/Resolved]
  - Asthenia [Not Recovered/Not Resolved]
  - Papule [Not Recovered/Not Resolved]
  - Lacrimation increased [Unknown]
  - Glossodynia [Unknown]
  - Oral mucosal blistering [Unknown]
  - Anxiety [Unknown]
  - Nausea [Not Recovered/Not Resolved]
  - Headache [Unknown]
  - Balance disorder [Not Recovered/Not Resolved]
  - Restlessness [Unknown]
  - Oral pain [Unknown]
  - Tongue blistering [Unknown]
  - Suicidal ideation [Unknown]

NARRATIVE: CASE EVENT DATE: 20210517
